FAERS Safety Report 9701703 (Version 1)
Quarter: 2013Q4

REPORT INFORMATION
  Report Type: Report from Study
  Country: LB (occurrence: LB)
  Receive Date: 20131121
  Receipt Date: 20131121
  Transmission Date: 20140711
  Serious: Yes (Death)
  Sender: FDA-Public Use
  Company Number: LB-SA-2013SA117939

PATIENT
  Age: 53 Year
  Sex: Female

DRUGS (11)
  1. LANTUS SOLOSTAR [Suspect]
     Indication: DIABETES MELLITUS
     Dosage: DOSAGE:20 U IN AM AND 15 U AT PM
     Route: 058
     Dates: start: 2013
  2. SOLOSTAR [Concomitant]
     Indication: DEVICE THERAPY
     Route: 058
  3. APIDRA [Concomitant]
     Indication: DIABETES MELLITUS
     Dosage: 4-5 U
     Route: 058
  4. TAPAZOLE [Concomitant]
     Route: 048
  5. GABAPENTIN [Concomitant]
     Route: 048
  6. ASPICOT [Concomitant]
     Route: 048
  7. BLOKIUM [Concomitant]
     Route: 048
  8. PENTOXIFYLLINE [Concomitant]
     Route: 048
  9. OXIRACETAM [Concomitant]
     Route: 048
  10. RANITIDINE [Concomitant]
     Route: 048
  11. ATORVASTATIN [Concomitant]
     Route: 048

REACTIONS (2)
  - Myocardial infarction [Fatal]
  - Off label use [Unknown]
